FAERS Safety Report 8129843-8 (Version None)
Quarter: 2011Q4

REPORT INFORMATION
  Report Type: 
  Country: None (occurrence: None)
  Receive Date: 20111227
  Receipt Date: 20110913
  Transmission Date: 20120403
  Serious: No
  Sender: FDA-Public Use
  Company Number: PHEH2011US00687

PATIENT
  Age: 34 Year
  Sex: Female

DRUGS (6)
  1. BACLOFEN [Concomitant]
  2. SEROQUEL [Concomitant]
  3. APRAZOLAM (APRAZOLAM) [Concomitant]
  4. GILENYA [Suspect]
     Indication: MULTIPLE SCLEROSIS
     Dosage: 0.5 MG, QD, ORAL
     Route: 048
     Dates: start: 20110715, end: 20110815
  5. CLARITIN [Concomitant]
  6. ZOLOFT [Concomitant]

REACTIONS (2)
  - PAIN [None]
  - HEADACHE [None]
